FAERS Safety Report 5147953-4 (Version None)
Quarter: 2006Q4

REPORT INFORMATION
  Report Type: 
  Country: None (occurrence: None)
  Receive Date: 20061106
  Receipt Date: 20060801
  Transmission Date: 20070319
  Serious: Yes (Other)
  Sender: FDA-Public Use
  Company Number: 2006027617

PATIENT
  Age: 84 Year
  Sex: Female

DRUGS (1)
  1. BEXTRA [Suspect]
     Indication: PAIN
     Dosage: (AS NECESSARY)
     Dates: start: 20040301

REACTIONS (10)
  - ACARODERMATITIS [None]
  - BLISTER [None]
  - DERMATITIS [None]
  - ECZEMA [None]
  - HAND-FOOT-AND-MOUTH DISEASE [None]
  - PRURITUS [None]
  - RASH [None]
  - RASH ERYTHEMATOUS [None]
  - RASH PRURITIC [None]
  - SKIN HYPERPIGMENTATION [None]
